FAERS Safety Report 18515045 (Version 2)
Quarter: 2021Q4

REPORT INFORMATION
  Report Type: Spontaneous
  Country: US (occurrence: US)
  Receive Date: 20201118
  Receipt Date: 20211129
  Transmission Date: 20220303
  Serious: No
  Sender: FDA-Public Use
  Company Number: US-UCBSA-2020034498

PATIENT
  Sex: Female

DRUGS (1)
  1. VIMPAT [Suspect]
     Active Substance: LACOSAMIDE
     Indication: Product used for unknown indication
     Dosage: 100 MILLIGRAM, 2X/DAY (BID)
     Dates: start: 202006

REACTIONS (6)
  - Speech disorder [Unknown]
  - Ataxia [Unknown]
  - Palpitations [Unknown]
  - Anxiety [Unknown]
  - Malaise [Unknown]
  - Adverse drug reaction [Unknown]
